FAERS Safety Report 19673949 (Version 1)
Quarter: 2021Q3

REPORT INFORMATION
  Report Type: Spontaneous
  Country: US (occurrence: US)
  Receive Date: 20210807
  Receipt Date: 20210807
  Transmission Date: 20211014
  Serious: Yes (Hospitalization)
  Sender: FDA-Public Use
  Company Number: None

PATIENT
  Age: 35 Year
  Sex: Female
  Weight: 71.22 kg

DRUGS (2)
  1. SAPPHIRE PUMP [DEVICE] [Suspect]
     Active Substance: DEVICE
  2. GAMUNEX?C [Suspect]
     Active Substance: HUMAN IMMUNOGLOBULIN G

REACTIONS (2)
  - Product packaging quantity issue [None]
  - Device alarm issue [None]

NARRATIVE: CASE EVENT DATE: 20210805
